FAERS Safety Report 9751235 (Version 1)
Quarter: 2013Q4

REPORT INFORMATION
  Report Type: Spontaneous
  Country: US (occurrence: US)
  Receive Date: 20131212
  Receipt Date: 20131212
  Transmission Date: 20140711
  Serious: No
  Sender: FDA-Public Use
  Company Number: US-BIOGENIDEC-2013BI100697

PATIENT
  Age: 61 Year
  Sex: Female

DRUGS (11)
  1. TECFIDERA [Suspect]
     Indication: PRODUCT USED FOR UNKNOWN INDICATION
     Route: 048
     Dates: start: 20130614, end: 20130621
  2. TECFIDERA [Suspect]
     Indication: PRODUCT USED FOR UNKNOWN INDICATION
     Route: 048
     Dates: start: 20130622
  3. DETROL LA [Concomitant]
  4. RAMIPRIL [Concomitant]
  5. CELEXA [Concomitant]
  6. ZOCOR [Concomitant]
  7. BACLOFEN [Concomitant]
  8. TOPROL [Concomitant]
  9. LEXAPRO [Concomitant]
  10. FISH OIL [Concomitant]
  11. ALTACE [Concomitant]

REACTIONS (1)
  - Flushing [Unknown]
